FAERS Safety Report 23517616 (Version 1)
Quarter: 2024Q1

REPORT INFORMATION
  Report Type: Spontaneous
  Country: US (occurrence: US)
  Receive Date: 20240213
  Receipt Date: 20240213
  Transmission Date: 20240410
  Serious: No
  Sender: FDA-Public Use
  Company Number: US-ABBVIE-5626574

PATIENT
  Sex: Male
  Weight: 88.45 kg

DRUGS (7)
  1. HUMIRA [Suspect]
     Active Substance: ADALIMUMAB
     Indication: Rheumatoid arthritis
     Dates: start: 20240203
  2. DICLOFENAC [Concomitant]
     Active Substance: DICLOFENAC
     Indication: Pain
  3. CIMETIDINE [Concomitant]
     Active Substance: CIMETIDINE
     Indication: Gastrointestinal disorder
  4. BUPRENORPHINE [Concomitant]
     Active Substance: BUPRENORPHINE
     Indication: Pain
  5. LIDOCAINE [Concomitant]
     Active Substance: LIDOCAINE
     Indication: Pain
  6. METAXALONE [Concomitant]
     Active Substance: METAXALONE
     Indication: Muscle relaxant therapy
  7. ALBUTEROL [Concomitant]
     Active Substance: ALBUTEROL
     Indication: Asthma

REACTIONS (1)
  - Pain [Not Recovered/Not Resolved]

NARRATIVE: CASE EVENT DATE: 20240101
